FAERS Safety Report 16498070 (Version 2)
Quarter: 2019Q3

REPORT INFORMATION
  Report Type: Spontaneous
  Country: GB (occurrence: GB)
  Receive Date: 20190628
  Receipt Date: 20190827
  Transmission Date: 20191004
  Serious: Yes (Hospitalization, Other)
  Sender: FDA-Public Use
  Company Number: GB-SA-2019SA170213

PATIENT
  Age: 92 Year
  Sex: Female

DRUGS (8)
  1. RANITIDINE HYDROCHLORIDE. [Suspect]
     Active Substance: RANITIDINE HYDROCHLORIDE
  2. DONEPEZIL HYDROCHLORIDE. [Suspect]
     Active Substance: DONEPEZIL HYDROCHLORIDE
  3. CALCICHEW-D3 FORTE [Concomitant]
     Active Substance: CALCIUM\CHOLECALCIFEROL
  4. DULOXETINE HYDROCHLORIDE. [Concomitant]
     Active Substance: DULOXETINE HYDROCHLORIDE
  5. FERROUS FUMARATE [Concomitant]
     Active Substance: FERROUS FUMARATE
  6. SIMVASTATIN. [Suspect]
     Active Substance: SIMVASTATIN
  7. ASPIRIN (E.C.) [Concomitant]
     Active Substance: ASPIRIN
  8. LOPERAMIDE HYDROCHLORIDE. [Concomitant]
     Active Substance: LOPERAMIDE HYDROCHLORIDE

REACTIONS (6)
  - Anal incontinence [Recovering/Resolving]
  - Weight decreased [Recovering/Resolving]
  - Hypokalaemia [Recovering/Resolving]
  - Colitis microscopic [Recovering/Resolving]
  - Impaired quality of life [Recovering/Resolving]
  - Diarrhoea [Recovering/Resolving]
